FAERS Safety Report 13040125 (Version 3)
Quarter: 2019Q1

REPORT INFORMATION
  Report Type: Spontaneous
  Country: US (occurrence: US)
  Receive Date: 20161219
  Receipt Date: 20190114
  Transmission Date: 20190417
  Serious: No
  Sender: FDA-Public Use
  Company Number: US-ENDO PHARMACEUTICALS INC.-2016-003933

PATIENT
  Age: 48 Year
  Sex: Female

DRUGS (11)
  1. PERCOCET [Suspect]
     Active Substance: ACETAMINOPHEN\OXYCODONE HYDROCHLORIDE
     Indication: PERIARTHRITIS
  2. CAMILA [Concomitant]
     Active Substance: NORETHINDRONE
     Indication: CONTRACEPTION
  3. ONDANSETRON [Concomitant]
     Active Substance: ONDANSETRON
     Indication: NAUSEA
     Dosage: UNK UNK, UNKNOWN
     Route: 065
  4. PANTOPRAZOLE [Concomitant]
     Active Substance: PANTOPRAZOLE
     Indication: GASTROOESOPHAGEAL REFLUX DISEASE
     Dosage: UNK UNK, UNKNOWN
     Route: 065
  5. PERCOCET [Suspect]
     Active Substance: ACETAMINOPHEN\OXYCODONE HYDROCHLORIDE
     Indication: PRODUCT USED FOR UNKNOWN INDICATION
     Dosage: UNK UNK, UNKNOWN
     Route: 065
  6. LOSARTAN. [Concomitant]
     Active Substance: LOSARTAN
     Indication: HYPERTENSION
     Dosage: UNK UNK, UNKNOWN
     Route: 065
  7. CAMILA [Concomitant]
     Active Substance: NORETHINDRONE
     Indication: HAEMORRHAGE
     Dosage: UNK UNK, UNKNOWN
     Route: 065
  8. PERCOCET [Suspect]
     Active Substance: ACETAMINOPHEN\OXYCODONE HYDROCHLORIDE
     Indication: BACK PAIN
     Dosage: 1 TAB EVERY 6 HOURS DAILY
     Route: 065
  9. PERCOCET [Suspect]
     Active Substance: ACETAMINOPHEN\OXYCODONE HYDROCHLORIDE
     Indication: NECK PAIN
     Dosage: 1 TAB EVERY 6 HOURS DAILY
     Route: 065
     Dates: start: 2014
  10. OXYCODONE [Suspect]
     Active Substance: OXYCODONE
     Indication: PRODUCT USED FOR UNKNOWN INDICATION
     Dosage: UNK UNK, UNKNOWN
     Route: 065
     Dates: start: 201312, end: 2013
  11. GABAPENTIN. [Concomitant]
     Active Substance: GABAPENTIN
     Indication: DYSKINESIA
     Dosage: UNK UNK, UNKNOWN
     Route: 065

REACTIONS (10)
  - Drug effect decreased [Unknown]
  - Feeling abnormal [Unknown]
  - Drug ineffective [Unknown]
  - Blood glucose decreased [Unknown]
  - Headache [Unknown]
  - Somnolence [Unknown]
  - Dry mouth [Unknown]
  - Product taste abnormal [Unknown]
  - Heart rate increased [Unknown]
  - Ocular hyperaemia [Unknown]

NARRATIVE: CASE EVENT DATE: 201405
